FAERS Safety Report 9878915 (Version 1)
Quarter: 2014Q1

REPORT INFORMATION
  Report Type: Spontaneous
  Country: US (occurrence: US)
  Receive Date: 20140206
  Receipt Date: 20140206
  Transmission Date: 20141002
  Serious: No
  Sender: FDA-Public Use
  Company Number: US-ALLERGAN-1312750US

PATIENT
  Age: 44 Year
  Sex: Male

DRUGS (5)
  1. BOTOX COSMETIC [Suspect]
     Indication: SKIN WRINKLING
     Dosage: UNK UNK, SINGLE
     Route: 030
     Dates: start: 20130819, end: 20130819
  2. BOTOX COSMETIC [Suspect]
     Indication: SKIN WRINKLING
     Dosage: UNK, SINGLE
     Route: 030
  3. BOTOX COSMETIC [Suspect]
     Indication: SKIN WRINKLING
     Dosage: UNK, SINGLE
     Route: 030
     Dates: start: 201304, end: 201304
  4. BOTOX COSMETIC [Suspect]
     Indication: SKIN WRINKLING
  5. PROVENTIL                          /00139501/ [Concomitant]
     Indication: ASTHMA
     Dosage: UNK UNK, PRN
     Route: 055

REACTIONS (19)
  - Off label use [Unknown]
  - Respiratory rate increased [Unknown]
  - Anxiety [Unknown]
  - Rash erythematous [Recovered/Resolved]
  - Rash pruritic [Recovered/Resolved]
  - Nervousness [Unknown]
  - Reaction to preservatives [Unknown]
  - Nervousness [Unknown]
  - Hyperventilation [Unknown]
  - Skin tightness [Unknown]
  - Malaise [Unknown]
  - Presyncope [Unknown]
  - Urticaria [Unknown]
  - Urticaria [Unknown]
  - Urticaria [Unknown]
  - Urticaria [Unknown]
  - Urticaria [Recovered/Resolved]
  - Rash [Recovered/Resolved]
  - Dyspnoea [Unknown]
